FAERS Safety Report 6634183-X (Version None)
Quarter: 2010Q1

REPORT INFORMATION
  Report Type: 
  Country: None (occurrence: None)
  Receive Date: 20100309
  Receipt Date: 20100224
  Transmission Date: 20100710
  Serious: Yes (Life-Threatening)
  Sender: FDA-Public Use
  Company Number: 055-20484-10020103

PATIENT
  Age: 70 Year
  Sex: Male

DRUGS (3)
  1. INNOHEP [Suspect]
     Indication: THROMBOSIS
     Dosage: 3500 IU (3500 IU, 1 IN 1 D), INTRAVENOUS, 10000 IU (5000 IU, 2 IN 1 D), INTRAVENOUS
     Route: 042
     Dates: start: 20100110
  2. INNOHEP [Suspect]
     Indication: THROMBOSIS
     Dosage: 3500 IU (3500 IU, 1 IN 1 D), INTRAVENOUS, 10000 IU (5000 IU, 2 IN 1 D), INTRAVENOUS
     Route: 042
     Dates: start: 20100110
  3. ENOXAPARIN SODIUM [Concomitant]

REACTIONS (2)
  - HEPARIN-INDUCED THROMBOCYTOPENIA [None]
  - OFF LABEL USE [None]
